FAERS Safety Report 10092472 (Version 1)
Quarter: 2014Q2

REPORT INFORMATION
  Report Type: Spontaneous
  Country: US (occurrence: US)
  Receive Date: 20140421
  Receipt Date: 20140421
  Transmission Date: 20141212
  Serious: No
  Sender: FDA-Public Use
  Company Number: US-SANOFI-AVENTIS-2013SA039709

PATIENT
  Age: 53 Year
  Sex: Male
  Weight: 92.99 kg

DRUGS (3)
  1. ALLEGRA 24 HOUR [Suspect]
     Indication: HYPERSENSITIVITY
     Dosage: DOSE: HALF TABLET OR FULL
     Route: 048
     Dates: start: 20110301, end: 20130301
  2. VITAMIN D [Concomitant]
  3. MULTIVITAMINS [Concomitant]

REACTIONS (2)
  - Insomnia [Recovered/Resolved]
  - Flushing [Recovered/Resolved]
